FAERS Safety Report 6694531-1 (Version None)
Quarter: 2010Q2

REPORT INFORMATION
  Report Type: 
  Country: None (occurrence: None)
  Receive Date: 20100423
  Receipt Date: 20100414
  Transmission Date: 20101027
  Serious: Yes (Other)
  Sender: FDA-Public Use
  Company Number: US-ABBOTT-09P-163-0609560-00

PATIENT
  Sex: Male
  Weight: 68.1 kg

DRUGS (6)
  1. HUMIRA [Suspect]
     Indication: ANKYLOSING SPONDYLITIS
     Dates: start: 20090916, end: 20091125
  2. HUMIRA [Suspect]
     Route: 058
     Dates: start: 20100118
  3. ALEVE (CAPLET) [Concomitant]
     Indication: PAIN
     Dosage: RN OR 3 DAYS BEFORE HUMIRA INJECTION
     Route: 048
     Dates: start: 20100101
  4. ALEVE (CAPLET) [Concomitant]
     Indication: BREAKTHROUGH PAIN
  5. METHOCARBAMOL [Concomitant]
     Indication: PAIN
     Route: 048
  6. METHOCARBAMOL [Concomitant]

REACTIONS (10)
  - ARTHRALGIA [None]
  - BACK PAIN [None]
  - BREAKTHROUGH PAIN [None]
  - EXOSTOSIS [None]
  - INCORRECT ROUTE OF DRUG ADMINISTRATION [None]
  - JOINT INJURY [None]
  - MUSCLE SPASMS [None]
  - MUSCULOSKELETAL DISCOMFORT [None]
  - MUSCULOSKELETAL PAIN [None]
  - NASOPHARYNGITIS [None]
